FAERS Safety Report 7542240-9 (Version None)
Quarter: 2011Q2

REPORT INFORMATION
  Report Type: 
  Country: None (occurrence: None)
  Receive Date: 20110613
  Receipt Date: 20110607
  Transmission Date: 20111010
  Serious: Yes (Other)
  Sender: FDA-Public Use
  Company Number: GB-PFIZER INC-2011124441

PATIENT
  Age: 44 Year
  Sex: Female

DRUGS (1)
  1. SERTRALINE HYDROCHLORIDE [Suspect]
     Dosage: 50 MG

REACTIONS (4)
  - PAIN [None]
  - DEVICE DISLOCATION [None]
  - UTERINE SPASM [None]
  - MUSCLE DISORDER [None]
